FAERS Safety Report 5707475-6 (Version None)
Quarter: 2008Q2

REPORT INFORMATION
  Report Type: 
  Country: None (occurrence: None)
  Receive Date: 20080416
  Receipt Date: 20080404
  Transmission Date: 20081010
  Serious: Yes (Other)
  Sender: FDA-Public Use
  Company Number: US-ELI_LILLY_AND_COMPANY-US200804001396

PATIENT
  Sex: Male

DRUGS (6)
  1. STRATTERA [Suspect]
     Dosage: 10 MG, EACH MORNING
     Dates: start: 20071101
  2. STRATTERA [Suspect]
     Dosage: 40 MG, EACH MORNING
     Dates: start: 20071101
  3. PEPCID [Concomitant]
     Dosage: 20 MG, UNK
  4. MOBIC [Concomitant]
     Dosage: 7.5 MG, UNK
  5. CLARITIN [Concomitant]
     Dosage: 10 MG, UNK
  6. AZULFIDINE EN-TABS [Concomitant]
     Dosage: 500 MG, 4/D

REACTIONS (2)
  - PHARYNGOLARYNGEAL PAIN [None]
  - TONSILLECTOMY [None]
